FAERS Safety Report 26165273 (Version 2)
Quarter: 2025Q4

REPORT INFORMATION
  Report Type: Spontaneous
  Country: EU (occurrence: EU)
  Receive Date: 20251216
  Receipt Date: 20251218
  Transmission Date: 20260117
  Serious: Yes (Death)
  Sender: ABBVIE
  Company Number: EU-ABBVIE-6590096

PATIENT
  Age: 50 Year
  Sex: Male

DRUGS (8)
  1. CEFTAROLINE [Suspect]
     Active Substance: CEFTAROLINE
     Indication: Pseudomonas infection
     Route: 058
  2. AVIBACTAM SODIUM\CEFTAZIDIME [Suspect]
     Active Substance: AVIBACTAM SODIUM\CEFTAZIDIME
     Indication: Pseudomonas infection
     Route: 042
  3. MEROPENEM [Concomitant]
     Active Substance: MEROPENEM
     Indication: Pneumonia
     Route: 065
  4. AMIKACIN [Concomitant]
     Active Substance: AMIKACIN
     Indication: Pseudomonas infection
     Route: 065
  5. DAPTOMYCIN [Suspect]
     Active Substance: DAPTOMYCIN
     Indication: Pseudomonas infection
     Route: 065
  6. AZTREONAM [Suspect]
     Active Substance: AZTREONAM
     Indication: Pseudomonas infection
     Route: 065
  7. COLISTIN [Concomitant]
     Active Substance: COLISTIN
     Indication: Acute respiratory distress syndrome
     Route: 042
  8. ISAVUCONAZOLE [Concomitant]
     Active Substance: ISAVUCONAZOLE
     Indication: Acute respiratory distress syndrome
     Route: 042

REACTIONS (1)
  - Septic shock [Fatal]
